FAERS Safety Report 5896191-6 (Version None)
Quarter: 2008Q3

REPORT INFORMATION
  Report Type: 
  Country: None (occurrence: None)
  Receive Date: 20080924
  Receipt Date: 20070624
  Transmission Date: 20090109
  Serious: Yes (Other)
  Sender: FDA-Public Use
  Company Number: US-ASTRAZENECA-2007UW10988

PATIENT
  Age: 361 Month
  Sex: Male

DRUGS (2)
  1. SEROQUEL [Suspect]
     Indication: DEPRESSION
     Route: 048
     Dates: start: 20020301, end: 20060516
  2. SEROQUEL [Suspect]
     Indication: SLEEP DISORDER
     Route: 048
     Dates: start: 20020301, end: 20060516

REACTIONS (9)
  - FATIGUE [None]
  - OBESITY [None]
  - OVERDOSE [None]
  - POLLAKIURIA [None]
  - SUICIDE ATTEMPT [None]
  - TESTICULAR DISORDER [None]
  - TYPE 2 DIABETES MELLITUS [None]
  - VISION BLURRED [None]
  - WEIGHT INCREASED [None]
